FAERS Safety Report 14289770 (Version 1)
Quarter: 2017Q4

REPORT INFORMATION
  Report Type: Spontaneous
  Country: US (occurrence: US)
  Receive Date: 20171214
  Receipt Date: 20171214
  Transmission Date: 20180321
  Serious: Yes (Other)
  Sender: FDA-Public Use
  Company Number: US-IMPAX LABORATORIES, INC-2017-IPXL-03321

PATIENT
  Age: 70 Year
  Sex: Male
  Weight: 86 kg

DRUGS (3)
  1. RYTARY [Suspect]
     Active Substance: CARBIDOPA\LEVODOPA
     Indication: PARKINSON^S DISEASE
     Dosage: 36.25/145MG, 2 CAPSULES FOUR TIMES DAILY AND 1 CAPSULE AT BEDTIME
     Route: 048
     Dates: start: 201604, end: 201705
  2. RYTARY [Suspect]
     Active Substance: CARBIDOPA\LEVODOPA
     Dosage: 61.25/245 MG 2 CAPSULES FOUR TIMES DAILY AND 1 CAPSULE AT BEDTIME
     Route: 048
     Dates: start: 20171005
  3. RYTARY [Suspect]
     Active Substance: CARBIDOPA\LEVODOPA
     Dosage: 48.75 /195 MG, 2 CAPSULES FOUR TIMES DAILY + 1 CAPSULE AT BEDTIME
     Route: 048
     Dates: start: 201705, end: 20171004

REACTIONS (4)
  - Freezing phenomenon [Recovering/Resolving]
  - Device issue [Recovering/Resolving]
  - Road traffic accident [Unknown]
  - Dyskinesia [Recovering/Resolving]

NARRATIVE: CASE EVENT DATE: 2017
